FAERS Safety Report 6389802-2 (Version None)
Quarter: 2009Q4

REPORT INFORMATION
  Report Type: 
  Country: None (occurrence: None)
  Receive Date: 20091002
  Receipt Date: 20091002
  Transmission Date: 20100525
  Serious: Yes (Other)
  Sender: FDA-Public Use
  Company Number: None

PATIENT
  Age: 47 Year
  Sex: Male
  Weight: 69.8539 kg

DRUGS (1)
  1. OXYCODONE HCL [Suspect]
     Indication: OSTEOARTHRITIS
     Dosage: 5 MG 1 PO
     Route: 048
     Dates: start: 20090930, end: 20091001

REACTIONS (7)
  - DRUG INEFFECTIVE [None]
  - FEELING ABNORMAL [None]
  - HEADACHE [None]
  - HEART RATE INCREASED [None]
  - PRODUCT COUNTERFEIT [None]
  - PRODUCT SUBSTITUTION ISSUE [None]
  - PRODUCT TAMPERING [None]
